FAERS Safety Report 9456411 (Version 2)
Quarter: 2013Q3

REPORT INFORMATION
  Report Type: Spontaneous
  Country: JP (occurrence: None)
  Receive Date: 20130809
  Receipt Date: 20130903
  Transmission Date: 20140515
  Serious: No
  Sender: FDA-Public Use
  Company Number: JP-012605

PATIENT
  Age: 78 Year
  Sex: Male

DRUGS (3)
  1. DEGARELIX [Suspect]
     Indication: PROSTATE CANCER
     Route: 058
     Dates: start: 20130426, end: 20130426
  2. LEUPLIN [Concomitant]
  3. CASODEX [Suspect]
     Indication: PRODUCT USED FOR UNKNOWN INDICATION
     Route: 048
     Dates: end: 20130705

REACTIONS (3)
  - Rash [None]
  - Blood creatinine increased [None]
  - Eczema [None]
